FAERS Safety Report 7529695-0 (Version None)
Quarter: 2011Q2

REPORT INFORMATION
  Report Type: 
  Country: None (occurrence: None)
  Receive Date: 20110607
  Receipt Date: 20110530
  Transmission Date: 20111010
  Serious: Yes (Hospitalization)
  Sender: FDA-Public Use
  Company Number: B0652756A

PATIENT
  Sex: Male
  Weight: 64 kg

DRUGS (18)
  1. PAXIL [Suspect]
     Dosage: 5MG PER DAY
     Route: 048
     Dates: start: 20100728, end: 20100824
  2. AMARYL [Concomitant]
     Dosage: 1MG PER DAY
     Route: 048
  3. SPIRIVA [Concomitant]
     Dosage: 18MCG PER DAY
     Route: 055
     Dates: start: 20100522
  4. METFORMIN HCL [Concomitant]
     Dosage: 250MG PER DAY
     Route: 048
     Dates: start: 20100728
  5. PAXIL [Suspect]
     Dosage: 10MG PER DAY
     Route: 048
     Dates: start: 20100825
  6. MOHRUS TAPE [Concomitant]
     Dosage: 40MG PER DAY
     Route: 062
     Dates: end: 20100324
  7. GASCON [Concomitant]
     Dosage: 120MG PER DAY
     Route: 048
  8. MEPTIN AIR [Concomitant]
     Indication: CHRONIC OBSTRUCTIVE PULMONARY DISEASE
     Route: 055
     Dates: start: 20100120
  9. HUSCODE [Concomitant]
     Route: 048
     Dates: start: 20100526
  10. SPIRIVA [Concomitant]
     Indication: CHRONIC OBSTRUCTIVE PULMONARY DISEASE
     Dosage: 1IUAX PER DAY
     Route: 055
     Dates: start: 20091118, end: 20100508
  11. MAGMITT [Concomitant]
     Dosage: 990MG PER DAY
     Route: 048
  12. FLUNASE (JAPAN) [Concomitant]
     Dosage: 200MCG PER DAY
     Route: 045
     Dates: start: 20100324
  13. PAXIL [Suspect]
     Dosage: 10MG PER DAY
     Route: 048
     Dates: end: 20100727
  14. MUCOSTA [Concomitant]
     Indication: GASTRITIS PROPHYLAXIS
     Route: 048
     Dates: start: 20100508, end: 20100517
  15. LAC B [Concomitant]
     Dosage: 3G PER DAY
     Route: 048
  16. SERETIDE [Suspect]
     Indication: CHRONIC OBSTRUCTIVE PULMONARY DISEASE
     Route: 055
     Dates: start: 20091118, end: 20100508
  17. HUSCODE [Concomitant]
     Indication: CHRONIC OBSTRUCTIVE PULMONARY DISEASE
     Route: 048
     Dates: start: 20100120, end: 20100324
  18. AMLODIPINE [Concomitant]
     Dosage: 5MG PER DAY
     Route: 048

REACTIONS (8)
  - PRODUCTIVE COUGH [None]
  - PNEUMONIA BACTERIAL [None]
  - COUGH [None]
  - IRRITABILITY [None]
  - HEADACHE [None]
  - MALAISE [None]
  - PYREXIA [None]
  - NASOPHARYNGITIS [None]
